FAERS Safety Report 5953826-7 (Version None)
Quarter: 2008Q4

REPORT INFORMATION
  Report Type: 
  Country: None (occurrence: None)
  Receive Date: 20081114
  Receipt Date: 20081103
  Transmission Date: 20090506
  Serious: Yes (Other)
  Sender: FDA-Public Use
  Company Number: CA-PFIZER INC-2008062517

PATIENT
  Sex: Female
  Weight: 45.4 kg

DRUGS (1)
  1. CHANTIX [Suspect]
     Indication: SMOKING CESSATION THERAPY
     Route: 048
     Dates: start: 20080613, end: 20080710

REACTIONS (6)
  - DEPRESSION [None]
  - DYSSTASIA [None]
  - FALL [None]
  - MALAISE [None]
  - PERSONALITY CHANGE [None]
  - WEIGHT INCREASED [None]
